FAERS Safety Report 10734742 (Version 1)
Quarter: 2015Q1

REPORT INFORMATION
  Report Type: Report from Study
  Country: BR (occurrence: BR)
  Receive Date: 20150123
  Receipt Date: 20150123
  Transmission Date: 20150721
  Serious: Yes (Other)
  Sender: FDA-Public Use
  Company Number: BR-BRISTOL-MYERS SQUIBB COMPANY-BMS-2015-003142

PATIENT
  Sex: Female
  Weight: 60 kg

DRUGS (1)
  1. CETUXIMAB [Suspect]
     Active Substance: CETUXIMAB
     Indication: GASTROINTESTINAL CARCINOMA
     Dosage: UNK
     Route: 065

REACTIONS (5)
  - Wound [Recovering/Resolving]
  - Mass [Recovering/Resolving]
  - Diabetes mellitus [Recovering/Resolving]
  - Skin fissures [Recovering/Resolving]
  - Dry skin [Unknown]
